FAERS Safety Report 5813456-4 (Version None)
Quarter: 2008Q3

REPORT INFORMATION
  Report Type: 
  Country: None (occurrence: None)
  Receive Date: 20080716
  Receipt Date: 20080716
  Transmission Date: 20090109
  Serious: Yes (Hospitalization)
  Sender: FDA-Public Use
  Company Number: None

PATIENT
  Sex: Male
  Weight: 104 kg

DRUGS (2)
  1. FLUOROURACIL [Suspect]
     Dosage: 864 MG
     Dates: end: 20080617
  2. LEUCOVORIN CALCIUM [Suspect]
     Dosage: 864 MG
     Dates: end: 20080617

REACTIONS (2)
  - METASTASES TO LIVER [None]
  - NEUROPATHY PERIPHERAL [None]
